FAERS Safety Report 8763037 (Version 3)
Quarter: 2012Q4

REPORT INFORMATION
  Report Type: Spontaneous
  Country: JP (occurrence: None)
  Receive Date: 20120827
  Receipt Date: 20121012
  Transmission Date: 20130627
  Serious: Yes (Hospitalization)
  Sender: FDA-Public Use
  Company Number: TPA2012A05844

PATIENT
  Age: 73 Year
  Sex: Female

DRUGS (13)
  1. FEBURIC [Suspect]
     Indication: GOUT
     Route: 048
     Dates: start: 20120721, end: 20120723
  2. FEBURIC [Suspect]
     Indication: HYPERURICAEMIA
     Route: 048
     Dates: start: 20120721, end: 20120723
  3. FEBURIC [Suspect]
     Indication: GOUT
     Route: 048
     Dates: start: 20120724, end: 20120731
  4. FEBURIC [Suspect]
     Indication: HYPERURICAEMIA
     Route: 048
     Dates: start: 20120724, end: 20120731
  5. TAKEPRON [Suspect]
     Indication: GASTRIC ULCER
     Route: 048
     Dates: start: 20120703, end: 20120802
  6. MUCOSOLVAN [Suspect]
     Indication: SPUTUM ABNORMAL
     Route: 048
     Dates: start: 20120724, end: 20120731
  7. AMLODIN [Suspect]
     Indication: HYPERTENSION
     Route: 048
     Dates: start: 20120712, end: 20120803
  8. BAKTAR [Suspect]
     Indication: INFECTION PROPHYLAXIS
     Route: 048
     Dates: start: 20120721, end: 20120731
  9. LASIX (FUROSEMIDE) [Suspect]
     Indication: DIURESIS
     Route: 048
     Dates: start: 20120731, end: 20120802
  10. ADALAT-CR [Suspect]
     Indication: HYPERTENSION
     Route: 048
     Dates: start: 20120731, end: 20120803
  11. OLMETEC (OLMESARTAN MEDOXOMIL) [Suspect]
     Indication: HYPERTENSION
     Route: 048
     Dates: start: 20120712, end: 20120802
  12. MEDICON (DEXTROMETHORPHAN HYDROBROMIDE) [Concomitant]
  13. PL(CAFFEINE, SALICYLAMIDE, PARACETAMOL, PROMETHAZINE METHYLENE DISALICYLATE) [Concomitant]

REACTIONS (2)
  - Rash [None]
  - Drug reaction with eosinophilia and systemic symptoms [None]
